FAERS Safety Report 7151822-8 (Version None)
Quarter: 2010Q4

REPORT INFORMATION
  Report Type: 
  Country: None (occurrence: None)
  Receive Date: 20101210
  Receipt Date: 20101101
  Transmission Date: 20110411
  Serious: Yes (Hospitalization, Other)
  Sender: FDA-Public Use
  Company Number: US-BAXTER-2009BH017335

PATIENT
  Age: 42 Year
  Sex: Female
  Weight: 130 kg

DRUGS (17)
  1. HEPARIN SODIUM INJECTION [Suspect]
     Indication: THROMBOSIS PROPHYLAXIS
     Route: 010
     Dates: start: 20071119, end: 20071119
  2. HEPARIN SODIUM INJECTION [Suspect]
     Route: 010
     Dates: start: 20071122, end: 20071122
  3. HEPARIN SODIUM INJECTION [Suspect]
     Route: 065
     Dates: start: 20071101
  4. HEPARIN SODIUM INJECTION [Suspect]
     Route: 010
     Dates: start: 20080405, end: 20080405
  5. HEPARIN SODIUM INJECTION [Suspect]
     Route: 065
     Dates: start: 20080401
  6. HEPARIN SODIUM INJECTION [Suspect]
     Route: 010
     Dates: start: 20080408, end: 20080408
  7. HEPARIN SODIUM INJECTION [Suspect]
     Route: 065
     Dates: start: 20080501
  8. HEPARIN SODIUM INJECTION [Suspect]
     Route: 010
     Dates: start: 20080428, end: 20080428
  9. HEPARIN SODIUM INJECTION [Suspect]
     Route: 010
     Dates: start: 20080517, end: 20080517
  10. LEVOTHYROXINE SODIUM [Concomitant]
     Indication: PRODUCT USED FOR UNKNOWN INDICATION
     Route: 065
  11. LABETALOL HCL [Concomitant]
     Indication: PRODUCT USED FOR UNKNOWN INDICATION
     Route: 065
  12. SENSIPAR [Concomitant]
     Indication: PRODUCT USED FOR UNKNOWN INDICATION
     Route: 065
  13. IRON [Concomitant]
     Indication: PRODUCT USED FOR UNKNOWN INDICATION
     Route: 065
  14. ERYTHROPOIETIN [Concomitant]
     Indication: PRODUCT USED FOR UNKNOWN INDICATION
     Route: 065
  15. CLONIDINE [Concomitant]
     Indication: PRODUCT USED FOR UNKNOWN INDICATION
     Route: 065
  16. AMLODIPINE [Concomitant]
     Indication: PRODUCT USED FOR UNKNOWN INDICATION
     Route: 065
  17. RENAGEL [Concomitant]
     Indication: PRODUCT USED FOR UNKNOWN INDICATION
     Route: 065

REACTIONS (29)
  - ABDOMINAL PAIN [None]
  - BURNING SENSATION [None]
  - CHEST PAIN [None]
  - DIARRHOEA [None]
  - DIZZINESS [None]
  - DRUG INEFFECTIVE [None]
  - DYSPEPSIA [None]
  - DYSPNOEA [None]
  - ERYTHEMA [None]
  - FLUSHING [None]
  - HEADACHE [None]
  - HEART RATE INCREASED [None]
  - HYPERHIDROSIS [None]
  - HYPERSENSITIVITY [None]
  - HYPOAESTHESIA [None]
  - HYPOTENSION [None]
  - LACRIMATION INCREASED [None]
  - LOSS OF CONSCIOUSNESS [None]
  - MALAISE [None]
  - NAUSEA [None]
  - OEDEMA MOUTH [None]
  - PALLOR [None]
  - PALPITATIONS [None]
  - PARAESTHESIA [None]
  - PHARYNGEAL OEDEMA [None]
  - RESTLESSNESS [None]
  - THIRST [None]
  - TRISMUS [None]
  - VOMITING [None]
